FAERS Safety Report 9276835 (Version 2)
Quarter: 2013Q2

REPORT INFORMATION
  Report Type: Spontaneous
  Country: GB (occurrence: GB)
  Receive Date: 20130507
  Receipt Date: 20130528
  Transmission Date: 20140414
  Serious: Yes (Death)
  Sender: FDA-Public Use
  Company Number: GB-BAXTER-2013BAX016371

PATIENT
  Sex: 0
  Weight: 70 kg

DRUGS (5)
  1. AERRANE (ISOFLURANE) [Suspect]
     Indication: COLECTOMY
     Route: 065
     Dates: start: 20121122
  2. BUPIVACAINE HYDROCHLORIDE 0.5% WITH GLUCOSE SOLUTION [Suspect]
     Indication: PRODUCT USED FOR UNKNOWN INDICATION
  3. KETAMINE [Suspect]
     Indication: PRODUCT USED FOR UNKNOWN INDICATION
  4. LIGNOCAINE [Suspect]
     Indication: PRODUCT USED FOR UNKNOWN INDICATION
  5. ALFENTANIL [Suspect]
     Indication: PRODUCT USED FOR UNKNOWN INDICATION

REACTIONS (2)
  - Acute hepatic failure [Fatal]
  - Toxicity to various agents [Fatal]
